FAERS Safety Report 17351863 (Version 2)
Quarter: 2020Q3

REPORT INFORMATION
  Report Type: Spontaneous
  Country: DE (occurrence: DE)
  Receive Date: 20200130
  Receipt Date: 20200324
  Transmission Date: 20201104
  Serious: Yes (Other)
  Sender: FDA-Public Use
  Company Number: DE-PFIZER INC-2020038180

PATIENT
  Sex: Male
  Weight: 73 kg

DRUGS (21)
  1. RITUXIMAB. [Suspect]
     Active Substance: RITUXIMAB
     Indication: DIFFUSE LARGE B-CELL LYMPHOMA
     Dosage: FURTHER LINE, R?GEMCITABINE/ R?LENALIDOMIDE 1 CYCLE
     Route: 065
     Dates: start: 201804, end: 201804
  2. POLATUZUMAB VEDOTIN. [Suspect]
     Active Substance: POLATUZUMAB VEDOTIN
     Indication: DIFFUSE LARGE B-CELL LYMPHOMA
     Dosage: 1ST LINE, R?CHOP STANDARD DOSE, 6 CYCLES
     Route: 065
     Dates: start: 201806, end: 201810
  3. IFOSFAMIDE. [Concomitant]
     Active Substance: IFOSFAMIDE
     Dosage: UNK
  4. METHOTREXATE SODIUM. [Suspect]
     Active Substance: METHOTREXATE SODIUM
     Indication: DIFFUSE LARGE B-CELL LYMPHOMA
     Dosage: 1ST LINE, R?CHOP STANDARD DOSE, 6 CYCLES
     Route: 065
     Dates: start: 201806, end: 201810
  5. GEMCITABINE. [Concomitant]
     Active Substance: GEMCITABINE
     Dosage: UNK
  6. CYTARABINE. [Concomitant]
     Active Substance: CYTARABINE
     Dosage: UNK
  7. VINCRISTINE [Concomitant]
     Active Substance: VINCRISTINE
     Dosage: UNK
  8. AZATHIOPRINE. [Suspect]
     Active Substance: AZATHIOPRINE
     Indication: DIFFUSE LARGE B-CELL LYMPHOMA
     Dosage: 1ST LINE, R?CHOP STANDARD DOSE, 6 CYCLES
     Route: 065
     Dates: start: 201806, end: 201810
  9. RITUXIMAB. [Suspect]
     Active Substance: RITUXIMAB
     Dosage: FURTHER LINE, R?ICE STANDARD DOSE 3 CYCLES
     Route: 065
     Dates: start: 201801, end: 201803
  10. RITUXIMAB. [Suspect]
     Active Substance: RITUXIMAB
     Dosage: 1ST LINE, R?CHOP STANDARD DOSE, 6 CYCLES
     Route: 065
     Dates: start: 201806, end: 201810
  11. RITUXIMAB. [Suspect]
     Active Substance: RITUXIMAB
     Dosage: 2ND LINE, R?DHAP STANDARD DOSE 1 CYCLE
     Route: 065
     Dates: start: 201812, end: 201901
  12. CARBOPLATIN. [Concomitant]
     Active Substance: CARBOPLATIN
     Dosage: UNK
  13. PREDNISONE. [Concomitant]
     Active Substance: PREDNISONE
     Dosage: UNK
  14. ETOPOSIDE. [Concomitant]
     Active Substance: ETOPOSIDE
     Dosage: UNK
  15. DEXAMETHASONE. [Suspect]
     Active Substance: DEXAMETHASONE
     Indication: DIFFUSE LARGE B-CELL LYMPHOMA
     Dosage: 1ST LINE, R?CHOP STANDARD DOSE, 6 CYCLES
     Route: 065
     Dates: start: 201806, end: 201810
  16. BENDAMUSTINE [Suspect]
     Active Substance: BENDAMUSTINE
     Indication: DIFFUSE LARGE B-CELL LYMPHOMA
     Dosage: 1ST LINE, R?CHOP STANDARD DOSE, 6 CYCLES
     Route: 065
     Dates: start: 201806, end: 201810
  17. THALIDOMIDE [Suspect]
     Active Substance: THALIDOMIDE
     Indication: DIFFUSE LARGE B-CELL LYMPHOMA
     Dosage: 1ST LINE, R?CHOP STANDARD DOSE, 6 CYCLES
     Route: 065
     Dates: start: 201806, end: 201810
  18. LENALIDOMIDE [Concomitant]
     Active Substance: LENALIDOMIDE
     Dosage: UNK
  19. CYCLOPHOSPHAMIDE. [Suspect]
     Active Substance: CYCLOPHOSPHAMIDE
     Indication: DIFFUSE LARGE B-CELL LYMPHOMA
     Dosage: 1ST LINE, R?CHOP STANDARD DOSE, 6 CYCLES
     Route: 065
     Dates: start: 201806, end: 201810
  20. CISPLATIN. [Concomitant]
     Active Substance: CISPLATIN
     Dosage: UNK
  21. DOXORUBICIN [Concomitant]
     Active Substance: DOXORUBICIN
     Dosage: UNK

REACTIONS (3)
  - Alanine aminotransferase increased [Unknown]
  - Blood bilirubin increased [Unknown]
  - Aspartate aminotransferase increased [Unknown]
